FAERS Safety Report 24393805 (Version 1)
Quarter: 2024Q4

REPORT INFORMATION
  Report Type: Spontaneous
  Country: US (occurrence: US)
  Receive Date: 20241003
  Receipt Date: 20241003
  Transmission Date: 20250115
  Serious: No
  Sender: PURDUE
  Company Number: US-PURDUE PHARMA-USA-2024-0312304

PATIENT
  Sex: Female

DRUGS (2)
  1. OXYCODONE HYDROCHLORIDE [Interacting]
     Active Substance: OXYCODONE HYDROCHLORIDE
     Indication: Product used for unknown indication
     Dosage: UNK
     Route: 065
  2. TUKYSA [Interacting]
     Active Substance: TUCATINIB
     Indication: Product used for unknown indication
     Dosage: 150 MG 2 TABLETS TWICE DAILY
     Route: 065
     Dates: start: 2021

REACTIONS (1)
  - Drug interaction [Unknown]
